FAERS Safety Report 8817481 (Version 1)
Quarter: 2012Q4

REPORT INFORMATION
  Report Type: Report from Study
  Country: RO (occurrence: RO)
  Receive Date: 20121001
  Receipt Date: 20121001
  Transmission Date: 20130627
  Serious: Yes (Death)
  Sender: FDA-Public Use
  Company Number: RO-SANOFI-AVENTIS-2012SA071456

PATIENT

DRUGS (4)
  1. CLOPIDOGREL BISULFATE [Suspect]
     Indication: ANTIPLATELET THERAPY
     Route: 065
  2. CLOPIDOGREL BISULFATE [Suspect]
     Indication: ANTIPLATELET THERAPY
     Route: 065
  3. ACETYLSALICYLIC ACID [Suspect]
     Indication: ANTIPLATELET THERAPY
     Route: 065
  4. ACETYLSALICYLIC ACID [Suspect]
     Indication: ANTIPLATELET THERAPY
     Route: 065

REACTIONS (1)
  - Cardiac death [Fatal]
